FAERS Safety Report 4766827-1 (Version None)
Quarter: 2005Q3

REPORT INFORMATION
  Report Type: 
  Country: None (occurrence: None)
  Receive Date: 20050908
  Receipt Date: 20050826
  Transmission Date: 20060218
  Serious: Yes (Other)
  Sender: FDA-Public Use
  Company Number: 141478USA

PATIENT
  Age: 74 Year
  Sex: Male

DRUGS (2)
  1. NAPROXEN [Suspect]
     Dates: start: 20040601
  2. VIOXX [Suspect]
     Indication: OSTEOARTHRITIS

REACTIONS (5)
  - CEREBROVASCULAR ACCIDENT [None]
  - CHEST PAIN [None]
  - DISCOMFORT [None]
  - MYOCARDIAL INFARCTION [None]
  - PAIN IN JAW [None]
